FAERS Safety Report 7230968-X (Version None)
Quarter: 2011Q1

REPORT INFORMATION
  Report Type: 
  Country: None (occurrence: None)
  Receive Date: 20110118
  Receipt Date: 20110107
  Transmission Date: 20110831
  Serious: Yes (Other)
  Sender: FDA-Public Use
  Company Number: IE-ROCHE-749178

PATIENT
  Sex: Female

DRUGS (8)
  1. SEREVENT [Suspect]
     Indication: ASTHMA
     Dosage: DOSE: 2 PUFFS
     Route: 048
  2. HERCEPTIN [Suspect]
     Dosage: FREQUENCY : ONGOING
     Route: 042
     Dates: start: 20101109
  3. HERCEPTIN [Suspect]
     Indication: BREAST CANCER
     Dosage: FREQUENCY : ONCE
     Route: 042
     Dates: start: 20100706
  4. ARIMIDEX [Concomitant]
     Indication: HORMONE THERAPY
     Route: 048
     Dates: start: 20101101
  5. CITALOPRAM [Concomitant]
  6. VENTOLIN [Suspect]
     Indication: ASTHMA
     Dosage: DOSE AND FREQUENCY : PRN
     Route: 048
  7. ZOTON [Concomitant]
     Indication: ILL-DEFINED DISORDER
     Route: 048
  8. BECOTIDE 250 [Suspect]
     Indication: ASTHMA
     Dosage: DOSE : 2 PUFFS
     Route: 048

REACTIONS (6)
  - WEIGHT INCREASED [None]
  - BLOOD POTASSIUM DECREASED [None]
  - PALPITATIONS [None]
  - HYPERTENSION [None]
  - BLOOD MAGNESIUM DECREASED [None]
  - BLOOD GLUCOSE INCREASED [None]
